FAERS Safety Report 8154055-1 (Version None)
Quarter: 2012Q1

REPORT INFORMATION
  Report Type: 
  Country: None (occurrence: None)
  Receive Date: 20120221
  Receipt Date: 20120215
  Transmission Date: 20120608
  Serious: Yes (Life-Threatening, Hospitalization)
  Sender: FDA-Public Use
  Company Number: IL-ROCHE-800583

PATIENT
  Age: 50 Year
  Sex: Male
  Weight: 75.7 kg

DRUGS (4)
  1. PREDNISOLONE [Concomitant]
  2. VEMURAFENIB [Suspect]
     Indication: METASTATIC MALIGNANT MELANOMA
     Route: 048
     Dates: start: 20110803, end: 20110822
  3. VEMURAFENIB [Suspect]
     Dates: start: 20110911
  4. BEVITEX [Concomitant]

REACTIONS (1)
  - HEPATITIS [None]
